FAERS Safety Report 13338761 (Version 1)
Quarter: 2017Q1

REPORT INFORMATION
  Report Type: Spontaneous
  Country: FR (occurrence: FR)
  Receive Date: 20170315
  Receipt Date: 20170315
  Transmission Date: 20170428
  Serious: Yes (Hospitalization)
  Sender: FDA-Public Use
  Company Number: FR-TEVA-746762ISR

PATIENT
  Age: 77 Year
  Sex: Female

DRUGS (12)
  1. NOVORAPID [Concomitant]
     Active Substance: INSULIN ASPART
  2. TAHOR [Concomitant]
     Active Substance: ATORVASTATIN CALCIUM
  3. ATENOLOL. [Concomitant]
     Active Substance: ATENOLOL
  4. KARDEGIC [Concomitant]
     Active Substance: ASPIRIN LYSINE
  5. MOPRAL [Suspect]
     Active Substance: OMEPRAZOLE SODIUM
     Indication: PRODUCT USED FOR UNKNOWN INDICATION
     Route: 065
     Dates: end: 20170207
  6. LANTUS [Concomitant]
     Active Substance: INSULIN GLARGINE
  7. AMLOR [Concomitant]
     Active Substance: AMLODIPINE BESYLATE
  8. VOLTARENE [Suspect]
     Active Substance: DICLOFENAC SODIUM
     Indication: PRODUCT USED FOR UNKNOWN INDICATION
     Route: 048
     Dates: start: 20170118, end: 20170125
  9. PARACETAMOL [Concomitant]
     Active Substance: ACETAMINOPHEN
  10. VOLTARENE [Suspect]
     Active Substance: DICLOFENAC SODIUM
     Route: 065
     Dates: start: 20170118, end: 20170125
  11. GLYCEROL\PARAFFIN [Concomitant]
     Active Substance: GLYCERIN\PARAFFIN
  12. RAMIPRIL. [Concomitant]
     Active Substance: RAMIPRIL

REACTIONS (2)
  - Inappropriate antidiuretic hormone secretion [Recovered/Resolved]
  - Cardiac failure [Recovering/Resolving]

NARRATIVE: CASE EVENT DATE: 20170205
